FAERS Safety Report 7420171-2 (Version None)
Quarter: 2011Q2

REPORT INFORMATION
  Report Type: 
  Country: None (occurrence: None)
  Receive Date: 20110413
  Receipt Date: 20110413
  Transmission Date: 20111010
  Serious: No
  Sender: FDA-Public Use
  Company Number: None

PATIENT
  Age: 90 Year
  Sex: Female
  Weight: 70.3075 kg

DRUGS (2)
  1. TIKOSYN [Suspect]
     Indication: ATRIAL FIBRILLATION
     Dosage: 500 MCG TWICE A DAY ORAL
     Route: 048
     Dates: start: 20101205, end: 20110331
  2. ATENOLOL [Concomitant]

REACTIONS (4)
  - PAIN IN EXTREMITY [None]
  - MYALGIA [None]
  - MUSCLE SPASMS [None]
  - CHEST PAIN [None]
